FAERS Safety Report 6619606-4 (Version None)
Quarter: 2010Q1

REPORT INFORMATION
  Report Type: 
  Country: None (occurrence: None)
  Receive Date: 20100309
  Receipt Date: 20100127
  Transmission Date: 20100710
  Serious: Yes (Death)
  Sender: FDA-Public Use
  Company Number: IT-SANOFI-AVENTIS-2010SA006406

PATIENT

DRUGS (4)
  1. FLUDARABINE PHOSPHATE [Suspect]
     Route: 048
  2. DEXAMETHASONE [Suspect]
     Route: 065
  3. RITUXIMAB [Suspect]
     Route: 065
  4. MITOXANTRONE [Suspect]
     Route: 065

REACTIONS (1)
  - STEVENS-JOHNSON SYNDROME [None]
